FAERS Safety Report 20449993 (Version 2)
Quarter: 2022Q3

REPORT INFORMATION
  Report Type: Spontaneous
  Country: US (occurrence: US)
  Receive Date: 20220209
  Receipt Date: 20220930
  Transmission Date: 20221026
  Serious: Yes (Other)
  Sender: FDA-Public Use
  Company Number: US-GILEAD-2022-0569076

PATIENT
  Age: 54 Year
  Sex: Male
  Weight: 96.599 kg

DRUGS (27)
  1. VIREAD [Suspect]
     Active Substance: TENOFOVIR DISOPROXIL FUMARATE
     Indication: HIV infection
     Dosage: UNK
     Route: 048
     Dates: start: 2003, end: 2004
  2. TRUVADA [Suspect]
     Active Substance: EMTRICITABINE\TENOFOVIR DISOPROXIL FUMARATE
     Indication: HIV infection
     Dosage: UNK
     Route: 048
     Dates: start: 2003
  3. TRUVADA [Suspect]
     Active Substance: EMTRICITABINE\TENOFOVIR DISOPROXIL FUMARATE
     Dosage: UNK
     Route: 048
     Dates: start: 2004, end: 201805
  4. BIKTARVY [Concomitant]
     Active Substance: BICTEGRAVIR SODIUM\EMTRICITABINE\TENOFOVIR ALAFENAMIDE FUMARATE
  5. DESCOVY [Concomitant]
     Active Substance: EMTRICITABINE\TENOFOVIR ALAFENAMIDE FUMARATE
  6. ODEFSEY [Concomitant]
     Active Substance: EMTRICITABINE\RILPIVIRINE HYDROCHLORIDE\TENOFOVIR ALAFENAMIDE FUMARATE
  7. COMBIVIR [Concomitant]
     Active Substance: LAMIVUDINE\ZIDOVUDINE
  8. CRIXIVAN [Concomitant]
     Active Substance: INDINAVIR SULFATE
  9. EPIVIR [Concomitant]
     Active Substance: LAMIVUDINE
  10. EPZICOM [Concomitant]
     Active Substance: ABACAVIR SULFATE\LAMIVUDINE
  11. INTELENCE [Concomitant]
     Active Substance: ETRAVIRINE
  12. ISENTRESS [Concomitant]
     Active Substance: RALTEGRAVIR POTASSIUM
  13. LEXIVA [Concomitant]
     Active Substance: FOSAMPRENAVIR CALCIUM
  14. PREZISTA [Concomitant]
     Active Substance: DARUNAVIR ETHANOLATE
  15. SUSTIVA [Concomitant]
     Active Substance: EFAVIRENZ
  16. TIVICAY [Concomitant]
     Active Substance: DOLUTEGRAVIR SODIUM
  17. VIDEX [Concomitant]
     Active Substance: DIDANOSINE
  18. VIRACEPT [Concomitant]
     Active Substance: NELFINAVIR MESYLATE
  19. VIRAMUNE [Concomitant]
     Active Substance: NEVIRAPINE
  20. ZIAGEN [Concomitant]
     Active Substance: ABACAVIR SULFATE
  21. ZERIT [Concomitant]
     Active Substance: STAVUDINE
  22. ZOLPIDEM [Concomitant]
     Active Substance: ZOLPIDEM TARTRATE
  23. HYDROCHLOROTHIAZIDE\LOSARTAN POTASSIUM [Concomitant]
     Active Substance: HYDROCHLOROTHIAZIDE\LOSARTAN POTASSIUM
  24. OMEPRAZOLE [Concomitant]
     Active Substance: OMEPRAZOLE
  25. ETRAVIRINE [Concomitant]
     Active Substance: ETRAVIRINE
  26. BUPROPION [Concomitant]
     Active Substance: BUPROPION
  27. TESTOSTERONE [Concomitant]
     Active Substance: TESTOSTERONE

REACTIONS (14)
  - Osteoporosis [Not Recovered/Not Resolved]
  - Multiple fractures [Unknown]
  - Spinal compression fracture [Not Recovered/Not Resolved]
  - Emotional distress [Not Recovered/Not Resolved]
  - Anhedonia [Not Recovered/Not Resolved]
  - Anxiety [Not Recovered/Not Resolved]
  - Pain [Not Recovered/Not Resolved]
  - Osteopenia [Not Recovered/Not Resolved]
  - Upper limb fracture [Not Recovered/Not Resolved]
  - Upper limb fracture [Not Recovered/Not Resolved]
  - Rib fracture [Not Recovered/Not Resolved]
  - General physical health deterioration [Unknown]
  - Gait disturbance [Unknown]
  - Body height decreased [Unknown]

NARRATIVE: CASE EVENT DATE: 20141201
